FAERS Safety Report 15756796 (Version 2)
Quarter: 2019Q1

REPORT INFORMATION
  Report Type: Spontaneous
  Country: US (occurrence: US)
  Receive Date: 20181224
  Receipt Date: 20190111
  Transmission Date: 20190417
  Serious: No
  Sender: FDA-Public Use
  Company Number: US-GLAXOSMITHKLINE-US2018229273

PATIENT
  Age: 66 Year
  Sex: Male

DRUGS (2)
  1. SENSODYNE RAPID RELIEF [Suspect]
     Active Substance: STANNOUS FLUORIDE
     Indication: PRODUCT USED FOR UNKNOWN INDICATION
     Dosage: UNK
  2. NICODERM CQ [Suspect]
     Active Substance: NICOTINE
     Indication: DRUG WITHDRAWAL MAINTENANCE THERAPY
     Dosage: 21 MG, UNK

REACTIONS (4)
  - Application site reaction [Unknown]
  - Product complaint [Unknown]
  - Wrong technique in product usage process [Unknown]
  - Application site erythema [Unknown]
